FAERS Safety Report 4611188-1 (Version None)
Quarter: 2005Q1

REPORT INFORMATION
  Report Type: 
  Country: None (occurrence: None)
  Receive Date: 20050317
  Receipt Date: 20050217
  Transmission Date: 20050727
  Serious: Yes (Life-Threatening)
  Sender: FDA-Public Use
  Company Number: CA-MERCK-0502CAN00106

PATIENT
  Age: 7 Year
  Sex: Female
  Weight: 25 kg

DRUGS (4)
  1. SINGULAIR [Suspect]
     Indication: ASTHMA
     Route: 048
     Dates: start: 20050212, end: 20050212
  2. SINGULAIR [Suspect]
     Indication: PROPHYLAXIS
     Route: 048
     Dates: start: 20050212, end: 20050212
  3. TERBUTALINE SULFATE [Concomitant]
     Indication: ASTHMA
     Route: 055
     Dates: start: 20040224
  4. BUDESONIDE AND FORMOTEROL FUMARATE [Concomitant]
     Indication: ASTHMA
     Route: 055
     Dates: start: 20040224

REACTIONS (2)
  - ANAPHYLACTIC SHOCK [None]
  - THIRST [None]
